FAERS Safety Report 17030883 (Version 1)
Quarter: 2019Q4

REPORT INFORMATION
  Report Type: Spontaneous
  Country: CA (occurrence: CA)
  Receive Date: 20191114
  Receipt Date: 20191114
  Transmission Date: 20200122
  Serious: Yes (Hospitalization, Disabling, Other)
  Sender: FDA-Public Use
  Company Number: CA-PFIZER INC-2019490296

PATIENT
  Age: 6 Year
  Sex: Female
  Weight: 21 kg

DRUGS (3)
  1. VINCRISTINE SULFATE. [Suspect]
     Active Substance: VINCRISTINE SULFATE
     Indication: NEPHROBLASTOMA
     Dosage: 1.3 MG, WEEKLY
     Route: 042
  2. COSMEGEN [Concomitant]
     Active Substance: DACTINOMYCIN
     Dosage: UNK
     Route: 042
  3. VINCRISTINE SULFATE. [Suspect]
     Active Substance: VINCRISTINE SULFATE
     Dosage: 1.6 MG, WEEKLY
     Route: 042

REACTIONS (5)
  - Fall [Recovered/Resolved]
  - Product use in unapproved indication [Unknown]
  - Loss of personal independence in daily activities [Recovered/Resolved]
  - Neuropathy peripheral [Recovered/Resolved]
  - Off label use [Unknown]
